FAERS Safety Report 25312565 (Version 1)
Quarter: 2025Q2

REPORT INFORMATION
  Report Type: Spontaneous
  Country: US (occurrence: None)
  Receive Date: 20250513
  Receipt Date: 20250513
  Transmission Date: 20250716
  Serious: Yes (Hospitalization)
  Sender: FDA-CTU
  Company Number: None

PATIENT
  Age: 66 Year
  Sex: Male
  Weight: 143 kg

DRUGS (1)
  1. SEMAGLUTIDE [Suspect]
     Active Substance: SEMAGLUTIDE
     Indication: Diabetes mellitus
     Route: 058

REACTIONS (7)
  - Chest pain [None]
  - Constipation [None]
  - Diarrhoea [None]
  - Dizziness [None]
  - Nausea [None]
  - Vomiting [None]
  - Food intolerance [None]

NARRATIVE: CASE EVENT DATE: 20250330
